FAERS Safety Report 7653958-1 (Version None)
Quarter: 2011Q3

REPORT INFORMATION
  Report Type: 
  Country: None (occurrence: None)
  Receive Date: 20110803
  Receipt Date: 20110729
  Transmission Date: 20111222
  Serious: Yes (Other)
  Sender: FDA-Public Use
  Company Number: VE-PFIZER INC-2011117040

PATIENT
  Age: 59 Year
  Sex: Female

DRUGS (2)
  1. VARENICLINE TARTRATE [Suspect]
     Indication: SMOKING CESSATION THERAPY
     Dosage: 1 MG, 2X/DAY
     Route: 048
     Dates: start: 20110501, end: 20110626
  2. ENALAPRIL MALEATE AND HYDROCHLOROTHIAZIDE [Concomitant]
     Indication: HYPERTENSION
     Dosage: 20/12.5 MG, 1X/DAY
     Route: 048

REACTIONS (6)
  - NAUSEA [None]
  - DEPRESSION [None]
  - INSOMNIA [None]
  - HEADACHE [None]
  - IRRITABILITY [None]
  - URINARY TRACT INFECTION [None]
